FAERS Safety Report 5748711-X (Version None)
Quarter: 2008Q2

REPORT INFORMATION
  Report Type: 
  Country: None (occurrence: None)
  Receive Date: 20080521
  Receipt Date: 20080507
  Transmission Date: 20081010
  Serious: Yes (Other)
  Sender: FDA-Public Use
  Company Number: E3810-01795-SPO-AU

PATIENT
  Age: 73 Year
  Sex: Male

DRUGS (5)
  1. RABEPRAZOLE SODIUM [Suspect]
     Dosage: 1 IN 1 D, ORAL; 2 IN 1 D, ORAL; ORAL
     Route: 048
  2. AVAPRO [Concomitant]
  3. CLOPIDOGREL BISULFATE [Concomitant]
  4. LIPITOR [Concomitant]
  5. FELODUR (FELODIPINE) [Concomitant]

REACTIONS (3)
  - DRUG INEFFECTIVE [None]
  - GASTRIC MUCOSAL HYPERTROPHY [None]
  - NAUSEA [None]
